FAERS Safety Report 10910649 (Version 1)
Quarter: 2015Q1

REPORT INFORMATION
  Report Type: Spontaneous
  Country: US (occurrence: US)
  Receive Date: 20150312
  Receipt Date: 20150312
  Transmission Date: 20150721
  Serious: No
  Sender: FDA-Public Use
  Company Number: US-SA-2015SA007885

PATIENT
  Sex: Male

DRUGS (3)
  1. NASACORT ALLERGY 24HR [Suspect]
     Active Substance: TRIAMCINOLONE ACETONIDE
     Indication: EYE PRURITUS
     Dosage: DOSE: 1 TO 2 SQUIRTS IN EACH NOSTRIL AND THEN SNIFF GENTLY
     Route: 045
  2. NASACORT ALLERGY 24HR [Suspect]
     Active Substance: TRIAMCINOLONE ACETONIDE
     Indication: SNEEZING
     Dosage: DOSE: 1 TO 2 SQUIRTS IN EACH NOSTRIL AND THEN SNIFF GENTLY
     Route: 045
  3. NASACORT ALLERGY 24HR [Suspect]
     Active Substance: TRIAMCINOLONE ACETONIDE
     Indication: RHINORRHOEA
     Dosage: DOSE: 1 TO 2 SQUIRTS IN EACH NOSTRIL AND THEN SNIFF GENTLY
     Route: 045

REACTIONS (3)
  - Lacrimation increased [Unknown]
  - Eye swelling [Unknown]
  - Paranasal sinus discomfort [Unknown]
